FAERS Safety Report 9856385 (Version 2)
Quarter: 2014Q1

REPORT INFORMATION
  Report Type: Report from Study
  Country: DE (occurrence: DE)
  Receive Date: 20140130
  Receipt Date: 20140130
  Transmission Date: 20141002
  Serious: Yes (Hospitalization, Other)
  Sender: FDA-Public Use
  Company Number: DE-BRISTOL-MYERS SQUIBB COMPANY-19974641

PATIENT
  Age: 71 Year
  Sex: Male
  Weight: 92 kg

DRUGS (8)
  1. BELATACEPT [Suspect]
     Indication: RENAL TRANSPLANT
     Route: 042
     Dates: start: 20140122
  2. CICLOSPORIN [Suspect]
     Indication: RENAL TRANSPLANT
  3. EVEROLIMUS [Suspect]
     Indication: RENAL TRANSPLANT
  4. MYCOPHENOLATE MOFETIL [Suspect]
     Indication: RENAL TRANSPLANT
  5. MYCOPHENOLATE SODIUM [Suspect]
     Indication: RENAL TRANSPLANT
  6. PREDNISONE [Suspect]
     Indication: RENAL TRANSPLANT
  7. SIROLIMUS [Suspect]
     Indication: RENAL TRANSPLANT
  8. TACROLIMUS [Suspect]
     Indication: RENAL TRANSPLANT

REACTIONS (3)
  - Transplant failure [Recovered/Resolved]
  - Anaemia [Recovered/Resolved]
  - Diabetic nephropathy [Unknown]
